FAERS Safety Report 6109569-2 (Version None)
Quarter: 2009Q1

REPORT INFORMATION
  Report Type: 
  Country: None (occurrence: None)
  Receive Date: 20090310
  Receipt Date: 20090305
  Transmission Date: 20090719
  Serious: Yes (Other)
  Sender: FDA-Public Use
  Company Number: US-JNJFOC-20090301535

PATIENT
  Sex: Female
  Weight: 99.79 kg

DRUGS (13)
  1. DURAGESIC-100 [Suspect]
     Route: 062
  2. DURAGESIC-100 [Suspect]
     Route: 062
  3. DURAGESIC-100 [Suspect]
     Indication: BACK PAIN
     Route: 062
  4. ORTHO TRI-CYCLEN [Concomitant]
     Indication: CONTRACEPTION
     Dosage: EVERY DAY
     Route: 048
  5. NEXIUM [Concomitant]
     Indication: GASTRIC DISORDER
     Dosage: 90 MG CAPSULE /40 MG ONE PER DAY
     Route: 048
  6. VITAMIN B COMPLEX CAP [Concomitant]
     Dosage: EVERY DAY
     Route: 048
  7. HYDROCODONE BITARTRATE [Concomitant]
     Indication: BREAKTHROUGH PAIN
     Dosage: 1 TO 4 TABLETS AS NEEDED
     Route: 048
  8. NORTRIPTYLINE HCL [Concomitant]
     Indication: SLEEP DISORDER
     Route: 048
  9. XANAX [Concomitant]
     Indication: ANXIETY
     Dosage: EVERY DAY
     Route: 048
  10. DICYCLOMINE [Concomitant]
     Indication: IRRITABLE BOWEL SYNDROME
     Route: 048
  11. CYMBALTA [Concomitant]
     Indication: DEPRESSION
     Route: 048
  12. TRAZODONE HCL [Concomitant]
     Indication: SLEEP DISORDER
     Route: 048
  13. SPRINTEC [Concomitant]
     Indication: CONTRACEPTION
     Route: 048

REACTIONS (7)
  - DEPRESSION [None]
  - ERYTHEMA [None]
  - FEELING HOT [None]
  - FLUSHING [None]
  - OSTEOARTHRITIS [None]
  - PRODUCT QUALITY ISSUE [None]
  - WRONG TECHNIQUE IN DRUG USAGE PROCESS [None]
